FAERS Safety Report 22687748 (Version 3)
Quarter: 2023Q4

REPORT INFORMATION
  Report Type: Report from Study
  Country: US (occurrence: US)
  Receive Date: 20230710
  Receipt Date: 20231011
  Transmission Date: 20240109
  Serious: Yes (Hospitalization, Disabling, Other)
  Sender: FDA-Public Use
  Company Number: US-ABBVIE-4718639

PATIENT
  Sex: Female

DRUGS (3)
  1. HUMIRA [Suspect]
     Active Substance: ADALIMUMAB
     Indication: Crohn^s disease
     Dosage: FORM STRENGTH: 40 MILLIGRAM?CITRATE FREE, END DATE 2023
     Route: 058
  2. HUMIRA [Suspect]
     Active Substance: ADALIMUMAB
     Indication: Psoriasis
     Dosage: FORM STRENGTH: 40 MILLIGRAM?CITRATE FREE, ONSET- 2023
     Route: 058
  3. HUMIRA [Suspect]
     Active Substance: ADALIMUMAB
     Dosage: FORM STRENGTH: 40 MILLIGRAM?CITRATE FREE
     Route: 058
     Dates: start: 20190919, end: 2023

REACTIONS (8)
  - Coma [Recovered/Resolved]
  - Liver abscess [Recovering/Resolving]
  - Haemoglobin decreased [Recovering/Resolving]
  - Biliary colic [Recovering/Resolving]
  - Gait inability [Recovering/Resolving]
  - Fatigue [Not Recovered/Not Resolved]
  - Post procedural sepsis [Unknown]
  - Musculoskeletal disorder [Unknown]

NARRATIVE: CASE EVENT DATE: 20230101
